FAERS Safety Report 18436222 (Version 1)
Quarter: 2020Q4

REPORT INFORMATION
  Report Type: Spontaneous
  Country: ES (occurrence: ES)
  Receive Date: 20201028
  Receipt Date: 20201028
  Transmission Date: 20210114
  Serious: Yes (Hospitalization)
  Sender: FDA-Public Use
  Company Number: ES-BAUSCH-BL-2020-030559

PATIENT
  Age: 75 Year
  Sex: Female

DRUGS (8)
  1. SINTROM [Concomitant]
     Active Substance: ACENOCOUMAROL
     Indication: THROMBOSIS
     Route: 048
     Dates: start: 20200406
  2. METFORMINA [Suspect]
     Active Substance: METFORMIN HYDROCHLORIDE
     Indication: TYPE 2 DIABETES MELLITUS
     Route: 048
     Dates: start: 20200423, end: 20201006
  3. OLMESARTAN/AMLODIPINO/HIDROCLOROTIAZIDA [Concomitant]
     Indication: ESSENTIAL HYPERTENSION
     Dosage: STRENGTH: 40 MG/5 MG/25 MG; 28 TABLETS
     Route: 048
     Dates: start: 20200409
  4. OMEPRAZOL [Concomitant]
     Active Substance: OMEPRAZOLE
     Indication: THROMBOSIS
     Route: 048
     Dates: start: 20200807
  5. AMIODARONA AUROVITAS [Concomitant]
     Indication: ATRIAL FIBRILLATION
     Route: 048
     Dates: start: 20200409
  6. PREGABALINA [Concomitant]
     Active Substance: PREGABALIN
     Indication: TENDON RUPTURE
     Route: 048
     Dates: start: 20200408
  7. BACLOFENO [Concomitant]
     Indication: ATRIAL FIBRILLATION
     Dosage: 30 TABLETS
     Route: 048
     Dates: start: 20200408
  8. PARACETAMOL [Concomitant]
     Active Substance: ACETAMINOPHEN
     Indication: TENDON RUPTURE
     Route: 048
     Dates: start: 20200423

REACTIONS (1)
  - Metabolic acidosis [Recovering/Resolving]

NARRATIVE: CASE EVENT DATE: 20201006
